FAERS Safety Report 19862902 (Version 1)
Quarter: 2021Q3

REPORT INFORMATION
  Report Type: Report from Study
  Country: US (occurrence: US)
  Receive Date: 20210921
  Receipt Date: 20210921
  Transmission Date: 20211014
  Serious: No
  Sender: FDA-Public Use
  Company Number: US-KYOWAKIRIN-2021BKK015680

PATIENT

DRUGS (1)
  1. CRYSVITA [Suspect]
     Active Substance: BUROSUMAB-TWZA
     Indication: OSTEOMALACIA
     Dosage: 40 MG, EVERY 4 WEEKS
     Route: 058
     Dates: start: 20210416

REACTIONS (3)
  - Headache [Recovering/Resolving]
  - Product use in unapproved indication [Unknown]
  - Stress [Unknown]

NARRATIVE: CASE EVENT DATE: 20210416
